FAERS Safety Report 18508102 (Version 2)
Quarter: 2021Q2

REPORT INFORMATION
  Report Type: Report from Study
  Country: BE (occurrence: BE)
  Receive Date: 20201116
  Receipt Date: 20210526
  Transmission Date: 20210717
  Serious: Yes (Hospitalization)
  Sender: FDA-Public Use
  Company Number: BE-SEAGEN-2020SGN05035

PATIENT
  Age: 35 Year
  Sex: Female
  Weight: 60.2 kg

DRUGS (7)
  1. ADRIAMYCIN [Suspect]
     Active Substance: DOXORUBICIN HYDROCHLORIDE
     Indication: HODGKIN^S DISEASE
     Dosage: 66.80 MILLIGRAM, Q3WEEKS
     Route: 042
     Dates: start: 20200529
  2. CYCLOPHOSPHAMIDE. [Suspect]
     Active Substance: CYCLOPHOSPHAMIDE
     Indication: HODGKIN^S DISEASE
     Dosage: 2088 MILLIGRAM, Q3WEEKS
     Route: 042
     Dates: start: 20200708
  3. DEXAMETHASONE. [Suspect]
     Active Substance: DEXAMETHASONE
     Indication: HODGKIN^S DISEASE
     Dosage: 40 MILLIGRAM, Q3WEEKS
     Route: 048
     Dates: start: 20200708
  4. BRENTUXIMAB VEDOTIN [Suspect]
     Active Substance: BRENTUXIMAB VEDOTIN
     Indication: HODGKIN^S DISEASE
     Dosage: 75 MILLIGRAM, Q3WEEKS
     Route: 042
     Dates: start: 20200529
  5. ETOPOSIDE. [Suspect]
     Active Substance: ETOPOSIDE
     Indication: HODGKIN^S DISEASE
     Dosage: 251 MILLIGRAM, Q3WEEKS
     Route: 042
     Dates: start: 20200708
  6. DACARBAZINE. [Suspect]
     Active Substance: DACARBAZINE
     Indication: HODGKIN^S DISEASE
     Dosage: 418 MILLIGRAM, Q3WEEKS
     Route: 042
     Dates: start: 20200529
  7. VINBLASTINE [Suspect]
     Active Substance: VINBLASTINE
     Indication: HODGKIN^S DISEASE
     Dosage: 9.70 MILLIGRAM, Q4WEEKS
     Route: 042
     Dates: start: 20200529

REACTIONS (1)
  - Meningitis [Recovered/Resolved]

NARRATIVE: CASE EVENT DATE: 20201103
